FAERS Safety Report 9922967 (Version 1)
Quarter: 2014Q1

REPORT INFORMATION
  Report Type: Spontaneous
  Country: US (occurrence: US)
  Receive Date: 20140225
  Receipt Date: 20140225
  Transmission Date: 20141002
  Serious: No
  Sender: FDA-Public Use
  Company Number: US-ENDO PHARMACEUTICALS INC.-DEXA20140001

PATIENT
  Sex: Male

DRUGS (1)
  1. DEXAMETHASONE ELIXIR (DEXAMETHASONE) (UNKNOWN) [Suspect]
     Indication: PRODUCT USED FOR UNKNOWN INDICATION
     Dosage: 0.5MG/5ML
     Route: 048

REACTIONS (1)
  - Psychomotor hyperactivity [Recovered/Resolved]
